FAERS Safety Report 5977004-0 (Version None)
Quarter: 2008Q4

REPORT INFORMATION
  Report Type: 
  Country: None (occurrence: None)
  Receive Date: 20081125
  Receipt Date: 20081117
  Transmission Date: 20090506
  Serious: Yes (Hospitalization)
  Sender: FDA-Public Use
  Company Number: 2008SP023432

PATIENT
  Age: 18 Year
  Sex: Female

DRUGS (4)
  1. AERIUS (DESLORATADINE) (DESLORATADINE) (5 MG) [Suspect]
     Indication: PRURITUS GENERALISED
     Dosage: 5 MG; PO
     Route: 048
     Dates: start: 20081105, end: 20081105
  2. CLAVULIN DUO [Concomitant]
  3. TACHIPIRINA [Concomitant]
  4. OKI [Concomitant]

REACTIONS (1)
  - EXTRAPYRAMIDAL DISORDER [None]
